FAERS Safety Report 4827061-X (Version None)
Quarter: 2005Q4

REPORT INFORMATION
  Report Type: 
  Country: None (occurrence: None)
  Receive Date: 20051014
  Receipt Date: 20050722
  Transmission Date: 20060501
  Serious: No
  Sender: FDA-Public Use
  Company Number: 2005SP000350

PATIENT
  Age: 56 Year
  Sex: Female

DRUGS (2)
  1. LUNESTA [Suspect]
     Dosage: SEE IMAGE
     Dates: start: 20050420, end: 20050422
  2. LUNESTA [Suspect]
     Dosage: SEE IMAGE
     Dates: start: 20050423, end: 20050424

REACTIONS (2)
  - DRUG INEFFECTIVE [None]
  - INSOMNIA [None]
